FAERS Safety Report 8577355-X (Version None)
Quarter: 2012Q3

REPORT INFORMATION
  Report Type: 
  Country: None (occurrence: None)
  Receive Date: 20120807
  Receipt Date: 20120225
  Transmission Date: 20120928
  Serious: Yes (Other)
  Sender: FDA-Public Use
  Company Number: CHPA2012US012750

PATIENT
  Age: 70 Year
  Sex: Male

DRUGS (2)
  1. GAS-X EXTRA STRENGTH [Suspect]
     Indication: FLATULENCE
     Dosage: 2 DF, QD
     Route: 048
     Dates: start: 20120201, end: 20120201
  2. TAMSULOSIN HCL [Suspect]
     Indication: PROSTATIC DISORDER
     Dosage: UNK, UNK

REACTIONS (3)
  - PROSTATIC DISORDER [None]
  - URINE FLOW DECREASED [None]
  - PROSTATOMEGALY [None]
